APPROVED DRUG PRODUCT: GENGRAF
Active Ingredient: CYCLOSPORINE
Strength: 100MG
Dosage Form/Route: CAPSULE;ORAL
Application: A065003 | Product #003 | TE Code: AB1
Applicant: ABBVIE INC
Approved: May 12, 2000 | RLD: No | RS: No | Type: RX